FAERS Safety Report 8442926-8 (Version None)
Quarter: 2012Q2

REPORT INFORMATION
  Report Type: 
  Country: None (occurrence: None)
  Receive Date: 20120323
  Receipt Date: 20110720
  Transmission Date: 20120825
  Serious: Yes (Other)
  Sender: FDA-Public Use
  Company Number: 163-21880-11061529

PATIENT
  Age: 43 Year
  Sex: Male

DRUGS (3)
  1. REVLIMID [Suspect]
     Indication: AMYLOIDOSIS
     Dosage: SEE IMAGE
     Route: 048
     Dates: start: 20110601
  2. REVLIMID [Suspect]
     Indication: AMYLOIDOSIS
     Dosage: SEE IMAGE
     Route: 048
     Dates: start: 20110604
  3. REVLIMID [Suspect]
     Indication: AMYLOIDOSIS
     Dosage: SEE IMAGE
     Route: 048
     Dates: start: 20110525, end: 20110528

REACTIONS (3)
  - PARAESTHESIA [None]
  - EYE SWELLING [None]
  - RASH [None]
